FAERS Safety Report 24208933 (Version 1)
Quarter: 2024Q3

REPORT INFORMATION
  Report Type: Spontaneous
  Country: CN (occurrence: CN)
  Receive Date: 20240814
  Receipt Date: 20240814
  Transmission Date: 20241016
  Serious: Yes (Death, Hospitalization)
  Sender: STRIDES
  Company Number: CN-STRIDES ARCOLAB LIMITED-2024SP010110

PATIENT
  Age: 68 Year
  Sex: Male

DRUGS (19)
  1. ETOPOSIDE [Suspect]
     Active Substance: ETOPOSIDE
     Indication: Small cell lung cancer extensive stage
     Dosage: 170 MILLIGRAM, EVERY 3 WEEKS (ON DAY 1-DAY 3)
     Route: 065
  2. DURVALUMAB [Suspect]
     Active Substance: DURVALUMAB
     Indication: Small cell lung cancer extensive stage
     Dosage: 1000 MILLIGRAM, EVERY 3 WEEKS
     Route: 065
     Dates: start: 20210921
  3. CARBOPLATIN [Suspect]
     Active Substance: CARBOPLATIN
     Indication: Small cell lung cancer extensive stage
     Dosage: 500 MILLIGRAM, EVERY 3 WEEKS
     Route: 065
     Dates: start: 20210921
  4. CEFTAZIDIME [Concomitant]
     Active Substance: CEFTAZIDIME
     Indication: Anti-infective therapy
     Dosage: UNK
     Route: 065
  5. CEFTAZIDIME [Concomitant]
     Active Substance: CEFTAZIDIME
     Indication: Interstitial lung disease
  6. CEFTAZIDIME [Concomitant]
     Active Substance: CEFTAZIDIME
     Indication: Evidence based treatment
  7. TOCILIZUMAB [Concomitant]
     Active Substance: TOCILIZUMAB
     Indication: Immunosuppressant drug therapy
     Dosage: 8 MILLIGRAM/KILOGRAM
     Route: 065
  8. TOCILIZUMAB [Concomitant]
     Active Substance: TOCILIZUMAB
     Indication: Immune-mediated lung disease
  9. INFLIXIMAB [Concomitant]
     Active Substance: INFLIXIMAB
     Indication: Immune-mediated lung disease
     Dosage: 5 MILLIGRAM/KILOGRAM
     Route: 065
  10. Immunoglobulin [Concomitant]
     Indication: Immune-mediated lung disease
     Dosage: 2 GRAM PER KILOGRAM, QD
     Route: 065
  11. PIRFENIDONE [Concomitant]
     Active Substance: PIRFENIDONE
     Indication: Immune-mediated lung disease
     Dosage: 200 MILLIGRAM, TID
     Route: 065
  12. SULBACTAM SODIUM [Concomitant]
     Active Substance: SULBACTAM SODIUM
     Indication: Immune-mediated lung disease
     Dosage: 3 GRAM
     Route: 041
  13. CEFOPERAZONE SODIUM [Concomitant]
     Active Substance: CEFOPERAZONE SODIUM
     Indication: Immune-mediated lung disease
     Dosage: UNK
     Route: 065
  14. METHYLPREDNISOLONE [Concomitant]
     Active Substance: METHYLPREDNISOLONE
     Indication: Immunosuppressant drug therapy
     Dosage: 240 MILLIGRAM, BID
     Route: 042
  15. METHYLPREDNISOLONE [Concomitant]
     Active Substance: METHYLPREDNISOLONE
     Indication: Immune-mediated lung disease
  16. ACETYLCYSTEINE [Concomitant]
     Active Substance: ACETYLCYSTEINE
     Indication: Evidence based treatment
     Dosage: UNK
  17. BUDESONIDE [Concomitant]
     Active Substance: BUDESONIDE
     Indication: Evidence based treatment
     Dosage: UNK
  18. DOXOFYLLINE [Concomitant]
     Active Substance: DOXOFYLLINE
     Indication: Evidence based treatment
     Dosage: UNK
     Route: 065
  19. IPRATROPIUM BROMIDE [Concomitant]
     Active Substance: IPRATROPIUM BROMIDE\IPRATROPIUM BROMIDE ANHYDROUS
     Indication: Evidence based treatment
     Dosage: UNK

REACTIONS (2)
  - Therapy non-responder [Fatal]
  - Malignant neoplasm progression [Fatal]
